FAERS Safety Report 6566093-0 (Version None)
Quarter: 2010Q1

REPORT INFORMATION
  Report Type: 
  Country: None (occurrence: None)
  Receive Date: 20100127
  Receipt Date: 20100120
  Transmission Date: 20100710
  Serious: Yes (Other)
  Sender: FDA-Public Use
  Company Number: 2009SP036423

PATIENT
  Sex: Male

DRUGS (2)
  1. CLARINEX D 24 HOUR [Suspect]
     Indication: DRUG USE FOR UNKNOWN INDICATION
     Dosage: PO
     Route: 048
  2. AVELOX [Suspect]
     Indication: SINUSITIS
     Dosage: 1 DF
     Dates: start: 20091113

REACTIONS (1)
  - PULMONARY EMBOLISM [None]
